FAERS Safety Report 19283598 (Version 2)
Quarter: 2021Q2

REPORT INFORMATION
  Report Type: Report from Study
  Country: None (occurrence: AR)
  Receive Date: 20210520
  Receipt Date: 20210618
  Transmission Date: 20210717
  Serious: Yes (Hospitalization, Other)
  Sender: FDA-Public Use
  Company Number: AR-ABBVIE-21K-007-3910955-00

PATIENT
  Age: 47 Year
  Sex: Female

DRUGS (2)
  1. COVID?19 VACCINE [Concomitant]
     Indication: COVID-19 IMMUNISATION
     Route: 030
  2. RINVOQ [Suspect]
     Active Substance: UPADACITINIB
     Indication: RHEUMATOID ARTHRITIS
     Route: 048
     Dates: start: 20210104, end: 2021

REACTIONS (5)
  - Respiratory failure [Recovered/Resolved]
  - Rheumatoid arthritis [Not Recovered/Not Resolved]
  - COVID-19 [Unknown]
  - COVID-19 [Recovered/Resolved]
  - Pulmonary embolism [Recovered/Resolved]

NARRATIVE: CASE EVENT DATE: 20210108
